FAERS Safety Report 16090194 (Version 4)
Quarter: 2020Q1

REPORT INFORMATION
  Report Type: Spontaneous
  Country: US (occurrence: US)
  Receive Date: 20190319
  Receipt Date: 20200305
  Transmission Date: 20200409
  Serious: No
  Sender: FDA-Public Use
  Company Number: US-SA-2019SA073110

PATIENT
  Age: 90 Year
  Sex: Male
  Weight: 64.8 kg

DRUGS (2)
  1. DUPIXENT [Suspect]
     Active Substance: DUPILUMAB
     Indication: DERMATITIS ATOPIC
     Dosage: 1 DF, QOW
     Route: 058
     Dates: start: 20181115, end: 201910
  2. DUPIXENT [Suspect]
     Active Substance: DUPILUMAB
     Dosage: UNK
     Dates: start: 202001

REACTIONS (8)
  - Pruritus [Unknown]
  - Drug ineffective [Unknown]
  - Skin fissures [Unknown]
  - Hypoaesthesia [Unknown]
  - Candida infection [Recovered/Resolved]
  - Skin discolouration [Unknown]
  - Dry skin [Unknown]
  - Erythema [Unknown]

NARRATIVE: CASE EVENT DATE: 200002
